FAERS Safety Report 5758599-9 (Version None)
Quarter: 2008Q2

REPORT INFORMATION
  Report Type: 
  Country: None (occurrence: None)
  Receive Date: 20080604
  Receipt Date: 20080528
  Transmission Date: 20081010
  Serious: Yes (Hospitalization)
  Sender: FDA-Public Use
  Company Number: B0522439A

PATIENT
  Sex: Male

DRUGS (1)
  1. ZANTAC [Suspect]
     Indication: DRUG USE FOR UNKNOWN INDICATION
     Route: 048
     Dates: start: 20080516, end: 20080516

REACTIONS (8)
  - ALLERGIC OEDEMA [None]
  - HYPERSENSITIVITY [None]
  - OEDEMA PERIPHERAL [None]
  - PRURITUS [None]
  - SENSATION OF FOREIGN BODY [None]
  - THROAT TIGHTNESS [None]
  - TREMOR [None]
  - WHEEZING [None]
